FAERS Safety Report 9694045 (Version 2)
Quarter: 2014Q1

REPORT INFORMATION
  Report Type: Spontaneous
  Country: US (occurrence: US)
  Receive Date: 20131118
  Receipt Date: 20140122
  Transmission Date: 20141002
  Serious: No
  Sender: FDA-Public Use
  Company Number: US-009507513-1310USA009965

PATIENT
  Age: 16 Year
  Sex: Female

DRUGS (1)
  1. NEXPLANON [Suspect]
     Indication: CONTRACEPTION
     Dosage: 1 ROD, SUBDERMAL, IN THE UPPER RIGHT ARM
     Route: 059
     Dates: start: 20130708

REACTIONS (2)
  - Tenderness [Not Recovered/Not Resolved]
  - Device dislocation [Not Recovered/Not Resolved]
